FAERS Safety Report 14073798 (Version 1)
Quarter: 2017Q4

REPORT INFORMATION
  Report Type: Spontaneous
  Country: DE (occurrence: DE)
  Receive Date: 20171011
  Receipt Date: 20171011
  Transmission Date: 20180321
  Serious: Yes (Other)
  Sender: FDA-Public Use
  Company Number: DE-PFIZER INC-2017433715

PATIENT
  Sex: Female
  Weight: 63 kg

DRUGS (5)
  1. LYRICA [Suspect]
     Active Substance: PREGABALIN
     Indication: DEPRESSION
     Dosage: 125 MG, DAILY GRADUALLY REDUCED UNTIL GEST. WEEK 30
     Route: 048
  2. RISPERDAL [Suspect]
     Active Substance: RISPERIDONE
     Indication: DEPRESSION
     Dosage: 1 MG, DAILY GRADUALLY REDUCED UNTIL GEST. WEEK 22
     Route: 048
  3. SERTRALINE [Concomitant]
     Active Substance: SERTRALINE HYDROCHLORIDE
     Dosage: 50 MG, DAILY (BEFORE DELIVERY)
     Route: 048
     Dates: end: 20170507
  4. FOLIC ACID. [Concomitant]
     Active Substance: FOLIC ACID
     Indication: VITAMIN SUPPLEMENTATION
     Dosage: UNK
     Route: 048
  5. SERTRALINE [Concomitant]
     Active Substance: SERTRALINE HYDROCHLORIDE
     Indication: DEPRESSION
     Dosage: 100 MG DAILY, DOSAGE REDUCTION TO 50 MG, DAILY DURING THE THIRD TRIMESTER
     Route: 048
     Dates: start: 20160806

REACTIONS (2)
  - Gestational diabetes [Recovered/Resolved]
  - Product use in unapproved indication [Unknown]
